FAERS Safety Report 8988347 (Version 1)
Quarter: 2012Q4

REPORT INFORMATION
  Report Type: Spontaneous
  Country: US (occurrence: None)
  Receive Date: 20121220
  Receipt Date: 20121220
  Transmission Date: 20130627
  Serious: Yes (Life-Threatening, Hospitalization, Disabling)
  Sender: FDA-Public Use
  Company Number: None

PATIENT
  Age: 55 Year
  Sex: Male
  Weight: 170 kg

DRUGS (1)
  1. VANCOMYCIN [Suspect]
     Indication: CELLULITIS
     Dosage: 1 partial dose only
     Route: 041
     Dates: start: 20121124, end: 20121124

REACTIONS (8)
  - Nausea [None]
  - Unresponsive to stimuli [None]
  - Swelling [None]
  - Cardio-respiratory arrest [None]
  - Anaphylactic reaction [None]
  - Respiratory failure [None]
  - Cerebrovascular accident [None]
  - Hypoxic-ischaemic encephalopathy [None]
